FAERS Safety Report 13075546 (Version 2)
Quarter: 2017Q1

REPORT INFORMATION
  Report Type: Spontaneous
  Country: US (occurrence: US)
  Receive Date: 20161230
  Receipt Date: 20170106
  Transmission Date: 20170428
  Serious: No
  Sender: FDA-Public Use
  Company Number: US-ASTRAZENECA-2016SF37977

PATIENT
  Age: 64 Year
  Sex: Female

DRUGS (1)
  1. PRILOSEC OTC [Suspect]
     Active Substance: OMEPRAZOLE MAGNESIUM
     Route: 048

REACTIONS (8)
  - Documented hypersensitivity to administered product [Unknown]
  - Eye pruritus [Recovered/Resolved]
  - Tongue discomfort [Recovered/Resolved]
  - Eye irritation [Recovered/Resolved]
  - Skin burning sensation [Recovered/Resolved]
  - Dyspepsia [Recovered/Resolved]
  - Reaction to drug excipients [Recovered/Resolved]
  - Hypersensitivity [Recovered/Resolved]
